FAERS Safety Report 25541300 (Version 1)
Quarter: 2025Q3

REPORT INFORMATION
  Report Type: Spontaneous
  Country: US (occurrence: US)
  Receive Date: 20250711
  Receipt Date: 20250711
  Transmission Date: 20251021
  Serious: No
  Sender: ASTELLAS
  Company Number: US-ASTELLAS-2025-AER-010422

PATIENT
  Age: 68 Year
  Sex: Female

DRUGS (2)
  1. VEOZAH [Suspect]
     Active Substance: FEZOLINETANT
     Indication: Hyperhidrosis
     Route: 048
  2. VEOZAH [Suspect]
     Active Substance: FEZOLINETANT
     Route: 048
     Dates: start: 202412

REACTIONS (3)
  - Feeling cold [Not Recovered/Not Resolved]
  - Chills [Not Recovered/Not Resolved]
  - Intentional product misuse [Unknown]
